FAERS Safety Report 10900863 (Version 1)
Quarter: 2015Q1

REPORT INFORMATION
  Report Type: Spontaneous
  Country: US (occurrence: US)
  Receive Date: 20150310
  Receipt Date: 20150310
  Transmission Date: 20150721
  Serious: No
  Sender: FDA-Public Use
  Company Number: US-PFIZER INC-2015081713

PATIENT
  Sex: Male

DRUGS (1)
  1. DETROL [Suspect]
     Active Substance: TOLTERODINE TARTRATE
     Dosage: UNK

REACTIONS (3)
  - Dyspnoea [Unknown]
  - Dehydration [Unknown]
  - Nasal dryness [Unknown]
